FAERS Safety Report 17352536 (Version 1)
Quarter: 2020Q1

REPORT INFORMATION
  Report Type: Spontaneous
  Country: GB (occurrence: GB)
  Receive Date: 20200131
  Receipt Date: 20200131
  Transmission Date: 20200409
  Serious: Yes (Other)
  Sender: FDA-Public Use
  Company Number: GB-ROCHE-2535238

PATIENT
  Age: 31 Year
  Sex: Male

DRUGS (1)
  1. OCREVUS [Suspect]
     Active Substance: OCRELIZUMAB
     Indication: PRODUCT USED FOR UNKNOWN INDICATION
     Route: 042

REACTIONS (8)
  - Muscular weakness [Unknown]
  - Paraesthesia [Unknown]
  - Atrophy [Unknown]
  - Magnetic resonance imaging abnormal [Unknown]
  - Disability [Unknown]
  - Hypoaesthesia [Unknown]
  - Eye pain [Unknown]
  - Hypoaesthesia [Unknown]

NARRATIVE: CASE EVENT DATE: 201409
